FAERS Safety Report 7294674-8 (Version None)
Quarter: 2011Q1

REPORT INFORMATION
  Report Type: 
  Country: None (occurrence: None)
  Receive Date: 20110216
  Receipt Date: 20100824
  Transmission Date: 20110831
  Serious: Yes (Other)
  Sender: FDA-Public Use
  Company Number: US-BAYER-201015212NA

PATIENT
  Sex: Male
  Weight: 81 kg

DRUGS (62)
  1. MAGNEVIST [Suspect]
     Dates: start: 20070627, end: 20070627
  2. MAGNEVIST [Suspect]
     Dates: start: 20070807, end: 20070807
  3. INSULIN PORCINE [Concomitant]
  4. LABETALOL HYDROCHLORIDE [Concomitant]
  5. RITALIN [Concomitant]
  6. MAGNEVIST [Suspect]
     Dates: start: 20040806, end: 20040806
  7. MAGNEVIST [Suspect]
     Dates: start: 20070131, end: 20070131
  8. CONTRAST MEDIA [Suspect]
     Indication: ANGIOGRAM
     Dates: start: 20030115, end: 20030115
  9. CONTRAST MEDIA [Suspect]
     Indication: NUCLEAR MAGNETIC RESONANCE IMAGING
     Dates: start: 20030312, end: 20030312
  10. HYDROMORPHONE HCL [Concomitant]
  11. KEPPRA [Concomitant]
  12. NORVASC [Concomitant]
  13. VALIUM [Concomitant]
  14. NORTRIPTYLINE [Concomitant]
  15. ALTACE [Concomitant]
  16. PHOSLO [Concomitant]
  17. DIOVAN [Concomitant]
  18. REGLAN [Concomitant]
     Dosage: 10 MG TID
  19. AVELOX [Concomitant]
  20. LIDOCAINE HYDROCHLORIDE [Concomitant]
  21. MAGNEVIST [Suspect]
     Dates: start: 20040804, end: 20040804
  22. MAGNEVIST [Suspect]
     Dates: start: 20060202, end: 20060202
  23. OXYFAST [Concomitant]
  24. DILAUDID [Concomitant]
  25. MARINOL [Concomitant]
  26. MEGACE [Concomitant]
  27. MAGNEVIST [Suspect]
     Indication: ANGIOGRAM
     Dates: start: 20040329, end: 20040329
  28. MAGNEVIST [Suspect]
     Dates: start: 20051026, end: 20051026
  29. MAGNEVIST [Suspect]
     Dates: start: 20061114, end: 20061114
  30. MAGNEVIST [Suspect]
     Dates: start: 20070426, end: 20070426
  31. VENOFER [Concomitant]
  32. CLONIDINE HYDROCHLORIDE [Concomitant]
  33. NEXIUM [Concomitant]
  34. TRAZODONE HCL [Concomitant]
  35. NEURONTIN [Concomitant]
  36. MAGNEVIST [Suspect]
     Indication: NUCLEAR MAGNETIC RESONANCE IMAGING
     Dates: start: 20020917, end: 20020917
  37. MAGNEVIST [Suspect]
     Dates: start: 20060930, end: 20060930
  38. CONTRAST MEDIA [Suspect]
     Indication: NUCLEAR MAGNETIC RESONANCE IMAGING BRAIN
     Dates: start: 20030708, end: 20030708
  39. CONTRAST MEDIA [Suspect]
     Dates: start: 20030828, end: 20030828
  40. ZEMPLAR [Concomitant]
  41. MAGNEVIST [Suspect]
     Indication: NUCLEAR MAGNETIC RESONANCE IMAGING BRAIN
     Dates: start: 20030505, end: 20030505
  42. MAGNEVIST [Suspect]
     Dates: start: 20050324, end: 20050324
  43. MAGNEVIST [Suspect]
     Dates: start: 20060208, end: 20060208
  44. MAGNEVIST [Suspect]
     Dates: start: 20060421, end: 20060421
  45. LASIX [Concomitant]
  46. OXYCONTIN [Concomitant]
  47. SENSIPAR [Concomitant]
  48. METHADONE HYDROCHLORIDE [Concomitant]
  49. MARINOL [Concomitant]
  50. LABETALOL HCL [Concomitant]
  51. MAGNEVIST [Suspect]
     Dates: start: 20050929, end: 20050929
  52. MAGNEVIST [Suspect]
     Dates: start: 20060914, end: 20060914
  53. CONTRAST MEDIA [Suspect]
     Dates: start: 20040212, end: 20040212
  54. EPOGEN [Concomitant]
  55. NEPHRO-VITE [VITAMINS NOS] [Concomitant]
  56. RENAGEL [Concomitant]
     Route: 048
  57. REGLAN [Concomitant]
  58. PREDNISONE [Concomitant]
     Dosage: 10 MG DAILY
  59. PROTONIX [Concomitant]
  60. DECADRON [Concomitant]
  61. NARCAN [Concomitant]
  62. KAYEXALATE [Concomitant]

REACTIONS (20)
  - SKIN HYPERPIGMENTATION [None]
  - NEPHROGENIC SYSTEMIC FIBROSIS [None]
  - OEDEMA PERIPHERAL [None]
  - ECCHYMOSIS [None]
  - ASTHENIA [None]
  - PARAESTHESIA [None]
  - SKIN PLAQUE [None]
  - SKIN ULCER HAEMORRHAGE [None]
  - PIGMENTATION DISORDER [None]
  - GENERALISED OEDEMA [None]
  - PETECHIAE [None]
  - PRURITUS [None]
  - PAIN IN EXTREMITY [None]
  - PURPURA [None]
  - RASH [None]
  - ARTHRALGIA [None]
  - CONTUSION [None]
  - PAIN [None]
  - MOBILITY DECREASED [None]
  - RASH MACULAR [None]
